FAERS Safety Report 7456659-8 (Version None)
Quarter: 2011Q2

REPORT INFORMATION
  Report Type: 
  Country: None (occurrence: None)
  Receive Date: 20110503
  Receipt Date: 20110427
  Transmission Date: 20111010
  Serious: Yes (Death, Other)
  Sender: FDA-Public Use
  Company Number: ES-PFIZER INC-2008031439

PATIENT
  Age: 34 Year
  Sex: Male

DRUGS (4)
  1. SEROQUEL [Concomitant]
     Indication: ANOREXIA NERVOSA
     Dosage: 100 MG/DAY
     Route: 048
     Dates: start: 20030101
  2. BESITRAN [Suspect]
     Indication: DEPRESSION
     Dosage: 100 MG, 1X/DAY
     Route: 048
     Dates: start: 20080101, end: 20080207
  3. LABILENO [Concomitant]
     Indication: CONVULSION
     Dosage: 100 MG/DAY
     Route: 048
     Dates: start: 20050101
  4. LORAZEPAM [Suspect]
     Indication: INSOMNIA
     Dosage: 1 MG, 1X/DAY
     Route: 048
     Dates: start: 20080101, end: 20080207

REACTIONS (9)
  - CARDIO-RESPIRATORY ARREST [None]
  - RIGHT VENTRICULAR HYPERTROPHY [None]
  - SPLENOMEGALY [None]
  - GASTRITIS HAEMORRHAGIC [None]
  - RENAL FAILURE ACUTE [None]
  - PULMONARY EMBOLISM [None]
  - HEPATOTOXICITY [None]
  - MYOCARDIAL INFARCTION [None]
  - CYSTITIS HAEMORRHAGIC [None]
